FAERS Safety Report 7927487-1 (Version None)
Quarter: 2011Q4

REPORT INFORMATION
  Report Type: 
  Country: None (occurrence: None)
  Receive Date: 20111118
  Receipt Date: 20111110
  Transmission Date: 20120403
  Serious: Yes (Other)
  Sender: FDA-Public Use
  Company Number: BR-SANOFI-AVENTIS-2011SA074437

PATIENT
  Age: 55 Year
  Sex: Female
  Weight: 92 kg

DRUGS (3)
  1. AUTOPEN 24 [Suspect]
     Indication: DEVICE THERAPY
     Dates: start: 20110101
  2. APIDRA [Suspect]
     Indication: TYPE 2 DIABETES MELLITUS
     Dosage: DOSE: UNSPECIFIED IU ACCORDING TO GLYCEMIA IN THE MORNING AFTER BREAKFAST AND AT NIGHT BEFORE DINNER
     Route: 058
     Dates: start: 20110101
  3. LANTUS [Suspect]
     Indication: TYPE 2 DIABETES MELLITUS
     Route: 058
     Dates: start: 20110101

REACTIONS (2)
  - INJECTION SITE PAIN [None]
  - HYPERTENSION [None]
